FAERS Safety Report 4629022-2 (Version None)
Quarter: 2005Q2

REPORT INFORMATION
  Report Type: 
  Country: None (occurrence: None)
  Receive Date: 20050407
  Receipt Date: 20050309
  Transmission Date: 20051028
  Serious: Yes (Death)
  Sender: FDA-Public Use
  Company Number: GB-BOEHRINGER INGELHEIM PHARMACEUTICALS, INC.-2005-UK-00405UK

PATIENT
  Sex: Male

DRUGS (12)
  1. SPIRIVA [Suspect]
     Route: 055
  2. SALBUTAMOL [Concomitant]
     Route: 055
  3. AMITRIPTYLINE HYDROCHLORIDE [Concomitant]
     Route: 048
  4. VERAPAMIL HYDROCHLORIDE [Concomitant]
     Dosage: 1 TID
     Route: 048
  5. SUMATRIPTAN SUCCINATE [Concomitant]
     Dosage: 20MG/0.1ML AS DIRECTED
  6. PREDNISOLONE [Concomitant]
     Route: 048
  7. CLARITHROMYCIN [Concomitant]
     Dosage: 1 TABLET BD
     Route: 048
  8. SERETIDE [Concomitant]
     Dosage: 2 PUFFS TWICE DAILY
     Route: 055
  9. MENTHOL AND EUCALYPTUS [Concomitant]
     Dosage: 5ML TO 1 PINT OF HOT WATER AND INHALE VAPOUR QID 200ML
     Route: 055
  10. PARACETAMOL [Concomitant]
     Dosage: 2 FOUR TIMES A DAY
     Route: 048
  11. OXYGEN [Concomitant]
     Dosage: 1360 LITRES
     Route: 055
  12. SUMATRIPTAN SUCCINATE [Concomitant]

REACTIONS (2)
  - CHRONIC OBSTRUCTIVE PULMONARY DISEASE [None]
  - LOWER RESPIRATORY TRACT INFECTION [None]
